FAERS Safety Report 8378701-2 (Version None)
Quarter: 2012Q2

REPORT INFORMATION
  Report Type: 
  Country: None (occurrence: None)
  Receive Date: 20120522
  Receipt Date: 20120515
  Transmission Date: 20120825
  Serious: Yes (Other)
  Sender: FDA-Public Use
  Company Number: FR-MERCK-1205FRA00074

PATIENT
  Sex: Female

DRUGS (1)
  1. FOSAMAX PLUS D [Suspect]
     Route: 065
     Dates: start: 20000101

REACTIONS (5)
  - WRIST FRACTURE [None]
  - OEDEMA PERIPHERAL [None]
  - BREAST CANCER [None]
  - BACK PAIN [None]
  - UPPER LIMB FRACTURE [None]
